FAERS Safety Report 4959498-2 (Version None)
Quarter: 2006Q1

REPORT INFORMATION
  Report Type: 
  Country: None (occurrence: None)
  Receive Date: 20060331
  Receipt Date: 20060322
  Transmission Date: 20060701
  Serious: Yes (Congenital Anomaly)
  Sender: FDA-Public Use
  Company Number: BR-JNJFOC-20060307192

PATIENT
  Sex: Male

DRUGS (1)
  1. TOPAMAX [Suspect]
     Route: 064

REACTIONS (1)
  - XYY SYNDROME [None]
